FAERS Safety Report 5480475-X (Version None)
Quarter: 2007Q4

REPORT INFORMATION
  Report Type: 
  Country: None (occurrence: None)
  Receive Date: 20071009
  Receipt Date: 20070927
  Transmission Date: 20080405
  Serious: Yes (Death)
  Sender: FDA-Public Use
  Company Number: US-ROCHE-523331

PATIENT

DRUGS (2)
  1. GANCICLOVIR SODIUM [Suspect]
     Dosage: ON DAY -1 OR DAY 0, TREATMENT WAS GIVEN OVER 1HOUR, TWICE A DAY FOR A CYCLE OF 21 DAYS
     Route: 042
  2. ARGININE BUTYRATE [Suspect]
     Dosage: ESCALATING DOSES OF ARGININE BUTYRATE CONTINUOUS INFUSION FOR CYCLES OF 21 DAYS, REPEATED EVERY 28 +
     Route: 042

REACTIONS (1)
  - TUMOUR LYSIS SYNDROME [None]
